FAERS Safety Report 7079192-4 (Version None)
Quarter: 2010Q4

REPORT INFORMATION
  Report Type: 
  Country: None (occurrence: None)
  Receive Date: 20101102
  Receipt Date: 20101022
  Transmission Date: 20110411
  Serious: Yes (Disabling)
  Sender: FDA-Public Use
  Company Number: B0675909A

PATIENT
  Sex: Male
  Weight: 70 kg

DRUGS (4)
  1. ATRIANCE [Suspect]
     Dosage: 1500MGM2 PER DAY
     Route: 065
     Dates: start: 20100809, end: 20100906
  2. NELARABINE [Concomitant]
     Route: 042
     Dates: start: 20081121
  3. NELARABINE [Concomitant]
     Route: 042
     Dates: start: 20100115
  4. NELARABINE [Concomitant]
     Route: 042
     Dates: start: 20100906

REACTIONS (14)
  - CRANIAL NERVE DISORDER [None]
  - DEAFNESS [None]
  - DRUG TOXICITY [None]
  - GUILLAIN-BARRE SYNDROME [None]
  - MUSCULAR WEAKNESS [None]
  - PARAESTHESIA [None]
  - PARAPARESIS [None]
  - PERIPHERAL MOTOR NEUROPATHY [None]
  - PERIPHERAL SENSORIMOTOR NEUROPATHY [None]
  - PERIPHERAL SENSORY NEUROPATHY [None]
  - QUADRIPLEGIA [None]
  - SENSORY LOSS [None]
  - TINNITUS [None]
  - URINARY RETENTION [None]
